FAERS Safety Report 17716955 (Version 1)
Quarter: 2020Q2

REPORT INFORMATION
  Report Type: Spontaneous
  Country: US (occurrence: US)
  Receive Date: 20200427
  Receipt Date: 20200427
  Transmission Date: 20200714
  Serious: Yes (Hospitalization)
  Sender: FDA-Public Use
  Company Number: None

PATIENT
  Age: 66 Year
  Sex: Female

DRUGS (1)
  1. SPRYCEL [Suspect]
     Active Substance: DASATINIB
     Route: 048
     Dates: start: 202001

REACTIONS (6)
  - Abdominal pain upper [None]
  - Dysphagia [None]
  - Erythema [None]
  - Pain [None]
  - Feeling hot [None]
  - Inflammation [None]

NARRATIVE: CASE EVENT DATE: 20200413
